FAERS Safety Report 5693219-3 (Version None)
Quarter: 2008Q2

REPORT INFORMATION
  Report Type: 
  Country: None (occurrence: None)
  Receive Date: 20080403
  Receipt Date: 20080326
  Transmission Date: 20081010
  Serious: Yes (Other)
  Sender: FDA-Public Use
  Company Number: GR-AVENTIS-200812713GDDC

PATIENT
  Age: 55 Year
  Sex: Female

DRUGS (3)
  1. ARAVA [Suspect]
     Dosage: DOSE: UNK
     Route: 048
  2. IRBESARTAN AND HCTZ [Concomitant]
     Indication: HYPERTENSION
     Dosage: DOSE: UNK
  3. CORTIZONE [Concomitant]
     Indication: RHEUMATOID ARTHRITIS

REACTIONS (1)
  - COLITIS ULCERATIVE [None]
